FAERS Safety Report 17664937 (Version 1)
Quarter: 2020Q2

REPORT INFORMATION
  Report Type: Spontaneous
  Country: US (occurrence: US)
  Receive Date: 20200414
  Receipt Date: 20200414
  Transmission Date: 20200713
  Serious: No
  Sender: FDA-Public Use
  Company Number: US-PFIZER INC-2017044704

PATIENT
  Age: 15 Year
  Sex: Male

DRUGS (2)
  1. GENOTROPIN MQ [Suspect]
     Active Substance: SOMATROPIN
     Dosage: 1.4 MG, UNK, ^FOR A COUPLE OF WEEKS^
  2. GENOTROPIN MQ [Suspect]
     Active Substance: SOMATROPIN
     Dosage: 2.8 MG, DAILY (TWO 1.4MG MINIQUICK INJECTIONS/NIGHT EQUAL TO 2.8MG)

REACTIONS (2)
  - Intentional product use issue [Unknown]
  - Hypersensitivity [Unknown]
